FAERS Safety Report 7185359-7 (Version None)
Quarter: 2010Q4

REPORT INFORMATION
  Report Type: 
  Country: None (occurrence: None)
  Receive Date: 20101123
  Receipt Date: 20100930
  Transmission Date: 20110411
  Serious: No
  Sender: FDA-Public Use
  Company Number: 017537

PATIENT
  Sex: Male
  Weight: 97.1 kg

DRUGS (3)
  1. CIMZIA [Suspect]
     Indication: CROHN'S DISEASE
     Dosage: (2 SYRINGES MONTHLY SUBCUTANEOUS)
     Route: 058
     Dates: start: 20100501
  2. HYOSCYAMINE [Suspect]
     Dosage: (0.125 MG 1X/6 HOURS ORAL)
     Route: 048
     Dates: start: 20100901, end: 20100901
  3. LISINOPRIL [Concomitant]

REACTIONS (5)
  - ABDOMINAL PAIN [None]
  - ABDOMINAL PAIN UPPER [None]
  - FATIGUE [None]
  - INFREQUENT BOWEL MOVEMENTS [None]
  - POLYURIA [None]
